FAERS Safety Report 14914823 (Version 1)
Quarter: 2018Q2

REPORT INFORMATION
  Report Type: Spontaneous
  Country: NL (occurrence: NL)
  Receive Date: 20180518
  Receipt Date: 20180518
  Transmission Date: 20180711
  Serious: Yes (Hospitalization)
  Sender: FDA-Public Use
  Company Number: NL-CURIUM PHARMACEUTICALS-201800164

PATIENT
  Age: 45 Year
  Sex: Female

DRUGS (2)
  1. SODIUM IODIDE (I131) CAPSULE T [Suspect]
     Active Substance: SODIUM IODIDE I-131
     Indication: DIAGNOSTIC PROCEDURE
     Route: 065
     Dates: start: 20180430, end: 20180430
  2. SODIUM IODIDE (I131) CAPSULE T [Suspect]
     Active Substance: SODIUM IODIDE I-131
     Indication: DIAGNOSTIC PROCEDURE
     Route: 065
     Dates: start: 20180430, end: 20180430

REACTIONS (4)
  - Radiation overdose [Recovered/Resolved]
  - Drug administration error [Recovered/Resolved]
  - Drug monitoring procedure not performed [Recovered/Resolved]
  - Incorrect dose administered [Recovered/Resolved]

NARRATIVE: CASE EVENT DATE: 20180430
